FAERS Safety Report 16124930 (Version 13)
Quarter: 2021Q1

REPORT INFORMATION
  Report Type: Report from Study
  Country: BR (occurrence: BR)
  Receive Date: 20190327
  Receipt Date: 20210217
  Transmission Date: 20210419
  Serious: Yes (Other)
  Sender: FDA-Public Use
  Company Number: PHHY2019BR065087

PATIENT
  Age: 44 Year
  Sex: Female
  Weight: 54 kg

DRUGS (17)
  1. LETROZOLE. [Suspect]
     Active Substance: LETROZOLE
     Dosage: UNK
     Route: 048
  2. ZOLADEX [Suspect]
     Active Substance: GOSERELIN ACETATE
     Indication: PRODUCT USED FOR UNKNOWN INDICATION
     Dosage: UNK
     Route: 065
     Dates: start: 201509
  3. KISQALI [Suspect]
     Active Substance: RIBOCICLIB
     Dosage: UNK
     Route: 065
     Dates: end: 20200218
  4. FASLODEX [Concomitant]
     Active Substance: FULVESTRANT
     Indication: PRODUCT USED FOR UNKNOWN INDICATION
     Dosage: UNK
     Route: 065
     Dates: start: 201908
  5. KISQALI [Suspect]
     Active Substance: RIBOCICLIB
     Dosage: UNK
     Route: 065
     Dates: start: 201903
  6. AFINITOR [Suspect]
     Active Substance: EVEROLIMUS
     Dosage: UNK
     Route: 065
     Dates: start: 201803, end: 201903
  7. KISQALI [Suspect]
     Active Substance: RIBOCICLIB
     Dosage: 3 DF, UNK
     Route: 065
  8. PIQRAY [Suspect]
     Active Substance: ALPELISIB
     Indication: BREAST CANCER
     Dosage: UNK
     Route: 065
     Dates: start: 20201110, end: 202012
  9. LETROZOLE. [Suspect]
     Active Substance: LETROZOLE
     Dosage: UNK
     Route: 048
     Dates: start: 20190326
  10. AFINITOR [Suspect]
     Active Substance: EVEROLIMUS
     Indication: PRODUCT USED FOR UNKNOWN INDICATION
     Dosage: 5 MG, QD
     Route: 065
  11. KISQALI [Suspect]
     Active Substance: RIBOCICLIB
     Indication: BREAST CANCER METASTATIC
     Dosage: UNK
     Route: 065
     Dates: start: 20190326
  12. KISQALI [Suspect]
     Active Substance: RIBOCICLIB
     Dosage: 2 DF, UNK
     Route: 065
  13. LETROZOLE. [Suspect]
     Active Substance: LETROZOLE
     Indication: BREAST CANCER METASTATIC
     Dosage: 2.5 MG, QD
     Route: 048
     Dates: start: 2017
  14. FASLODEX [Concomitant]
     Active Substance: FULVESTRANT
     Dosage: UNK (START DATE: MORE THAN A YEAR)
     Route: 065
  15. KISQALI [Suspect]
     Active Substance: RIBOCICLIB
     Dosage: UNK (BETWEEN 2 TO 3 TABLEST PER DAY)
     Route: 065
     Dates: start: 20190326
  16. KISQALI [Suspect]
     Active Substance: RIBOCICLIB
     Dosage: 2 DF, UNK
     Route: 065
  17. AROMASIN [Suspect]
     Active Substance: EXEMESTANE
     Indication: PRODUCT USED FOR UNKNOWN INDICATION
     Dosage: UNK
     Route: 065

REACTIONS (45)
  - Malignant neoplasm progression [Recovering/Resolving]
  - Lymphadenopathy [Not Recovered/Not Resolved]
  - Self esteem decreased [Not Recovered/Not Resolved]
  - Hypovitaminosis [Not Recovered/Not Resolved]
  - Poisoning [Recovered/Resolved]
  - Migraine [Unknown]
  - Psychiatric symptom [Not Recovered/Not Resolved]
  - Lymphoedema [Not Recovered/Not Resolved]
  - Aphthous ulcer [Recovered/Resolved]
  - Rash [Not Recovered/Not Resolved]
  - Skin lesion [Unknown]
  - Periorbital pain [Unknown]
  - Skin injury [Recovered/Resolved]
  - Condition aggravated [Not Recovered/Not Resolved]
  - General physical condition abnormal [Unknown]
  - Headache [Unknown]
  - Breast discolouration [Recovering/Resolving]
  - Depressed mood [Not Recovered/Not Resolved]
  - Tongue exfoliation [Recovered/Resolved]
  - Oedema peripheral [Not Recovered/Not Resolved]
  - Drug ineffective [Not Recovered/Not Resolved]
  - Device related infection [Unknown]
  - Pain [Unknown]
  - Tooth disorder [Unknown]
  - Weight decreased [Unknown]
  - Emotional disorder [Not Recovered/Not Resolved]
  - Alopecia [Not Recovered/Not Resolved]
  - Hypokinesia [Unknown]
  - Neuralgia [Unknown]
  - Feeding disorder [Unknown]
  - Nausea [Unknown]
  - Breast disorder [Unknown]
  - Tumour pain [Not Recovered/Not Resolved]
  - Neoplasm [Unknown]
  - General physical health deterioration [Recovering/Resolving]
  - Breast pain [Not Recovered/Not Resolved]
  - Impaired work ability [Not Recovered/Not Resolved]
  - Inappropriate schedule of product administration [Unknown]
  - Hepatotoxicity [Unknown]
  - Breast cancer metastatic [Recovering/Resolving]
  - Skin plaque [Not Recovered/Not Resolved]
  - Back pain [Unknown]
  - Oedema [Unknown]
  - Mood swings [Not Recovered/Not Resolved]
  - Dysgeusia [Unknown]

NARRATIVE: CASE EVENT DATE: 201903
